FAERS Safety Report 23220136 (Version 1)
Quarter: 2023Q4

REPORT INFORMATION
  Report Type: Report from Study
  Country: US (occurrence: US)
  Receive Date: 20231123
  Receipt Date: 20231123
  Transmission Date: 20240109
  Serious: Yes (Other)
  Sender: FDA-Public Use
  Company Number: US-ABBVIE-5507452

PATIENT
  Sex: Male

DRUGS (3)
  1. SKYRIZI [Suspect]
     Active Substance: RISANKIZUMAB-RZAA
     Indication: Crohn^s disease
     Dosage: TIME INTERVAL: TOTAL: WEEK 0?FORM STRENGTH: 600 MG/10ML
     Route: 042
     Dates: start: 20230726, end: 20230726
  2. SKYRIZI [Suspect]
     Active Substance: RISANKIZUMAB-RZAA
     Indication: Crohn^s disease
     Dosage: TIME INTERVAL: TOTAL: FORM STRENGTH: 600 MG/10ML?WEEK 4
     Route: 042
     Dates: start: 20230907, end: 20230907
  3. SKYRIZI [Suspect]
     Active Substance: RISANKIZUMAB-RZAA
     Indication: Crohn^s disease
     Dosage: TIME INTERVAL: TOTAL: FORM STRENGTH: 600 MG/10ML?WEEK 8
     Route: 042
     Dates: start: 20231005, end: 20231005

REACTIONS (5)
  - Anorectal operation [Recovering/Resolving]
  - Abdominal pain [Recovering/Resolving]
  - Nausea [Recovering/Resolving]
  - Surgery [Unknown]
  - Inflammation [Unknown]

NARRATIVE: CASE EVENT DATE: 20230101
